FAERS Safety Report 21706961 (Version 2)
Quarter: 2022Q4

REPORT INFORMATION
  Report Type: Spontaneous
  Country: JP (occurrence: JP)
  Receive Date: 20221209
  Receipt Date: 20221214
  Transmission Date: 20230112
  Serious: Yes (Other)
  Sender: FDA-Public Use
  Company Number: JP-BAYER-2022A166259

PATIENT
  Age: 85 Year
  Sex: Male

DRUGS (1)
  1. EYLEA [Suspect]
     Active Substance: AFLIBERCEPT
     Indication: Polypoidal choroidal vasculopathy
     Dosage: 20 TIMES SOLUTION FOR INJECTION IN PRE-FILLED SYRINGE 40 MG/ML
     Route: 031

REACTIONS (2)
  - Retinal vasculitis [Recovering/Resolving]
  - Visual acuity reduced [Recovered/Resolved]
